FAERS Safety Report 8740693 (Version 2)
Quarter: 2014Q3

REPORT INFORMATION
  Report Type: Spontaneous
  Country: US (occurrence: US)
  Receive Date: 20120823
  Receipt Date: 20140702
  Transmission Date: 20150326
  Serious: Yes (Hospitalization)
  Sender: FDA-Public Use
  Company Number: US-ASTRAZENECA-2012SE57598

PATIENT
  Age: 47 Year
  Sex: Male
  Weight: 138.3 kg

DRUGS (18)
  1. LANTUS [Concomitant]
     Active Substance: INSULIN GLARGINE
     Indication: DIABETES MELLITUS
     Dosage: BID
  2. FLONASE [Concomitant]
     Active Substance: FLUTICASONE PROPIONATE
     Dosage: QD
     Route: 045
  3. VICODIN [Concomitant]
     Active Substance: ACETAMINOPHEN\HYDROCODONE BITARTRATE
     Indication: PAIN
     Dosage: PRN
     Route: 048
  4. NORCO [Concomitant]
     Active Substance: ACETAMINOPHEN\HYDROCODONE BITARTRATE
     Indication: PAIN
     Dosage: 7.5MG
     Route: 048
  5. PROTONICS [Concomitant]
     Indication: GASTROOESOPHAGEAL REFLUX DISEASE
     Dosage: 40MG
     Route: 048
  6. APIDRA SLIDING SCALE [Concomitant]
     Indication: DIABETES MELLITUS
  7. ACUPRIL [Concomitant]
     Indication: HYPERTENSION
     Dosage: 40MG
     Route: 048
  8. NEURONTIN [Concomitant]
     Active Substance: GABAPENTIN
     Indication: DIABETIC NEUROPATHY
     Route: 048
  9. FISH OIL [Concomitant]
     Active Substance: FISH OIL
     Dosage: 1000MG
     Route: 048
  10. COREG [Concomitant]
     Active Substance: CARVEDILOL
     Indication: HYPERTENSION
     Dosage: 25MG
     Route: 048
  11. VALIUM [Concomitant]
     Active Substance: DIAZEPAM
     Indication: SLEEP DISORDER
     Route: 048
  12. VIAGRA [Concomitant]
     Active Substance: SILDENAFIL CITRATE
     Dosage: PRN
     Route: 048
  13. STOOL SOFTNER [Concomitant]
     Dosage: GENERIC, AT NIGHT
  14. CRESTOR [Suspect]
     Active Substance: ROSUVASTATIN CALCIUM
     Indication: BLOOD CHOLESTEROL INCREASED
     Route: 048
     Dates: end: 20140622
  15. VIT B 12 [Concomitant]
  16. FOLIC ACID. [Concomitant]
     Active Substance: FOLIC ACID
     Dosage: 500MG
     Route: 048
  17. CRESTOR [Suspect]
     Active Substance: ROSUVASTATIN CALCIUM
     Indication: BLOOD CHOLESTEROL INCREASED
     Route: 048
  18. AMLODIPINE [Concomitant]
     Active Substance: AMLODIPINE BESYLATE
     Indication: BLOOD PRESSURE ABNORMAL
     Route: 048

REACTIONS (6)
  - Cerebrovascular accident [Unknown]
  - Atrial fibrillation [Unknown]
  - Fall [Unknown]
  - Peripheral swelling [Unknown]
  - Syncope [Unknown]
  - Drug dose omission [Unknown]

NARRATIVE: CASE EVENT DATE: 201405
